FAERS Safety Report 7883647-X (Version None)
Quarter: 2011Q4

REPORT INFORMATION
  Report Type: 
  Country: None (occurrence: None)
  Receive Date: 20111102
  Receipt Date: 20111026
  Transmission Date: 20120403
  Serious: Yes (Hospitalization)
  Sender: FDA-Public Use
  Company Number: IT-BAYER-2011-104370

PATIENT
  Age: 74 Year
  Sex: Female

DRUGS (7)
  1. ASPIRIN [Suspect]
     Indication: CAROTID ARTERY STENOSIS
     Dosage: 100 MG, QD
     Route: 048
     Dates: start: 20010814, end: 20111015
  2. CRESTOR [Concomitant]
  3. NORVASC [Concomitant]
     Indication: HYPERTENSION
  4. TICLID [Suspect]
     Indication: CAROTID ARTERY STENOSIS
     Dosage: DAILY DOSE 500 MG
     Route: 048
     Dates: start: 20110815, end: 20111015
  5. ATENOLOL [Concomitant]
  6. TICLID [Suspect]
     Dosage: DAILY DOSE 250 MG
     Route: 048
     Dates: start: 20010814, end: 20110814
  7. MODURETIC 5-50 [Concomitant]
     Route: 048

REACTIONS (1)
  - SUBARACHNOID HAEMORRHAGE [None]
